FAERS Safety Report 17478840 (Version 1)
Quarter: 2020Q1

REPORT INFORMATION
  Report Type: Report from Study
  Country: CA (occurrence: CA)
  Receive Date: 20200228
  Receipt Date: 20200228
  Transmission Date: 20200409
  Serious: Yes (Other)
  Sender: FDA-Public Use
  Company Number: CA-JNJFOC-20191236011

PATIENT
  Sex: Female

DRUGS (1)
  1. STELARA [Suspect]
     Active Substance: USTEKINUMAB
     Indication: HIDRADENITIS
     Dosage: STRENGTH = 45 MG
     Route: 058
     Dates: start: 20160307

REACTIONS (2)
  - Lower respiratory tract infection [Recovering/Resolving]
  - Nasopharyngitis [Recovering/Resolving]
